FAERS Safety Report 7957318-5 (Version None)
Quarter: 2011Q4

REPORT INFORMATION
  Report Type: 
  Country: None (occurrence: None)
  Receive Date: 20111205
  Receipt Date: 20111130
  Transmission Date: 20120403
  Serious: Yes (Other)
  Sender: FDA-Public Use
  Company Number: US-BAYER-2011-050648

PATIENT
  Sex: Male

DRUGS (2)
  1. NEXAVAR [Suspect]
     Indication: PROSTATE CANCER
     Dosage: 200 MG, BID
     Dates: start: 20100928
  2. COUMADIN [Concomitant]

REACTIONS (2)
  - UNEVALUABLE EVENT [None]
  - MOUTH HAEMORRHAGE [None]
